FAERS Safety Report 4923570-3 (Version None)
Quarter: 2006Q1

REPORT INFORMATION
  Report Type: 
  Country: None (occurrence: None)
  Receive Date: 20060227
  Receipt Date: 20051227
  Transmission Date: 20060701
  Serious: Yes (Death, Other)
  Sender: FDA-Public Use
  Company Number: PHBS2005JP19053

PATIENT
  Age: 26 Year
  Sex: Male

DRUGS (1)
  1. SANDIMMUNE [Suspect]
     Indication: BONE MARROW TRANSPLANT
     Dosage: 3 MG/KG/DAY
     Route: 042
     Dates: start: 20051130

REACTIONS (3)
  - GRAFT COMPLICATION [None]
  - PNEUMONIA [None]
  - RESPIRATORY FAILURE [None]
